FAERS Safety Report 25599806 (Version 5)
Quarter: 2025Q4

REPORT INFORMATION
  Report Type: Spontaneous
  Country: CO (occurrence: CO)
  Receive Date: 20250724
  Receipt Date: 20251231
  Transmission Date: 20260118
  Serious: Yes (Hospitalization, Other)
  Sender: SANDOZ
  Company Number: CO-002147023-NVSC2025CO100482

PATIENT
  Age: 68 Year
  Sex: Female
  Weight: 70 kg

DRUGS (20)
  1. ANASTROZOLE [Suspect]
     Active Substance: ANASTROZOLE
     Indication: Product used for unknown indication
     Dosage: 1 DOSAGE FORM, QD
  2. KISQALI [Suspect]
     Active Substance: RIBOCICLIB SUCCINATE
     Indication: Hormone receptor positive HER2 negative breast cancer
     Dosage: UNK
  3. KISQALI [Suspect]
     Active Substance: RIBOCICLIB SUCCINATE
     Indication: Breast cancer metastatic
     Dosage: 600 MG, QD
  4. KISQALI [Suspect]
     Active Substance: RIBOCICLIB SUCCINATE
     Indication: Breast cancer
     Dosage: 600 MG, QD
  5. COVID-19 VACCINE NOS [Suspect]
     Active Substance: COVID-19 VACCINE
     Indication: Product used for unknown indication
     Dosage: UNK
  6. COVID-19 VACCINE NOS [Suspect]
     Active Substance: COVID-19 VACCINE
     Dosage: UNK
  7. SODIUM ALGINATE [Concomitant]
     Active Substance: SODIUM ALGINATE
     Indication: Product used for unknown indication
  8. ROSUVASTATIN [Concomitant]
     Active Substance: ROSUVASTATIN
     Indication: Product used for unknown indication
     Dosage: 40 MG
  9. METOPROLOL [Concomitant]
     Active Substance: METOPROLOL
     Indication: Product used for unknown indication
     Dosage: 50 MG, Q12H
  10. METOPROLOL [Concomitant]
     Active Substance: METOPROLOL
     Dosage: 1 DOSAGE FORM, Q12H
     Dates: start: 20210211
  11. LANSOPRAZOLE [Concomitant]
     Active Substance: LANSOPRAZOLE
     Indication: Product used for unknown indication
     Dosage: 15 MG
  12. AMLODIPINE BESYLATE\IRBESARTAN [Concomitant]
     Active Substance: AMLODIPINE BESYLATE\IRBESARTAN
     Indication: Product used for unknown indication
     Dosage: 150 MG, QD
  13. AMLODIPINE BESYLATE\IRBESARTAN [Concomitant]
     Active Substance: AMLODIPINE BESYLATE\IRBESARTAN
     Dosage: 1 DOSAGE FORM, Q12H
     Dates: start: 20210211
  14. AMLODIPINE BESYLATE\IRBESARTAN [Concomitant]
     Active Substance: AMLODIPINE BESYLATE\IRBESARTAN
     Dosage: 1 DOSAGE FORM, Q12H
     Dates: start: 20250527
  15. FUROSEMIDE [Concomitant]
     Active Substance: FUROSEMIDE
     Indication: Product used for unknown indication
     Dosage: 1 DOSAGE FORM, Q12H
     Dates: start: 20220527
  16. FUROSEMIDE [Concomitant]
     Active Substance: FUROSEMIDE
     Dosage: 1 DOSAGE FORM, Q12H
     Dates: start: 20250527
  17. CLONIDINE [Concomitant]
     Active Substance: CLONIDINE
     Indication: Atrioventricular block
     Dosage: UNK
  18. NIFEDIPINE [Concomitant]
     Active Substance: NIFEDIPINE
     Indication: Atrioventricular block
     Dosage: UNK
  19. LOSARTAN [Concomitant]
     Active Substance: LOSARTAN
     Indication: Atrioventricular block
     Dosage: UNK
  20. ASPIRIN [Concomitant]
     Active Substance: ASPIRIN
     Indication: Atrioventricular block
     Dosage: UNK

REACTIONS (35)
  - Femur fracture [Recovered/Resolved]
  - Fall [Unknown]
  - Ischaemic stroke [Recovered/Resolved with Sequelae]
  - Metastases to spine [Unknown]
  - Metastases to bone [Unknown]
  - Malignant neoplasm progression [Unknown]
  - Metastases to lymph nodes [Unknown]
  - Gastritis erosive [Unknown]
  - Discomfort [Unknown]
  - Invasive ductal breast carcinoma [Unknown]
  - Metastases to central nervous system [Unknown]
  - Meningioma [Unknown]
  - Metastases to liver [Unknown]
  - Breast cancer metastatic [Unknown]
  - Metastases to skin [Unknown]
  - Lower limb fracture [Recovered/Resolved]
  - Metastases to pelvis [Unknown]
  - Cerebrovascular disorder [Recovered/Resolved with Sequelae]
  - Cerebrovascular accident [Recovered/Resolved]
  - Fracture [Recovered/Resolved]
  - Illness [Unknown]
  - Pain [Unknown]
  - Gastrooesophageal reflux disease [Unknown]
  - Chronic gastritis [Unknown]
  - Aphasia [Recovered/Resolved]
  - Oesophagitis [Unknown]
  - Abdominal hernia [Unknown]
  - Helicobacter test positive [Unknown]
  - Umbilical hernia [Unknown]
  - Hiatus hernia [Unknown]
  - Neck pain [Unknown]
  - Osteoporosis [Recovered/Resolved]
  - Malaise [Unknown]
  - Vomiting [Unknown]
  - Product distribution issue [Unknown]

NARRATIVE: CASE EVENT DATE: 20230823
